FAERS Safety Report 5118906-7 (Version None)
Quarter: 2006Q3

REPORT INFORMATION
  Report Type: 
  Country: None (occurrence: None)
  Receive Date: 20060927
  Receipt Date: 20060912
  Transmission Date: 20061208
  Serious: Yes (Other)
  Sender: FDA-Public Use
  Company Number: 14801

PATIENT
  Age: 58 Year
  Sex: Female
  Weight: 75 kg

DRUGS (2)
  1. PACLITAXEL [Suspect]
     Indication: BREAST CANCER
     Dosage: 235 MG TOTAL IV
     Route: 042
     Dates: start: 20060720
  2. VINORELBINE [Concomitant]

REACTIONS (3)
  - ERYTHEMA [None]
  - FEELING HOT [None]
  - HYPERTENSION [None]
